FAERS Safety Report 10179419 (Version 2)
Quarter: 2014Q3

REPORT INFORMATION
  Report Type: Report from Study
  Country: US (occurrence: None)
  Receive Date: 20140515
  Receipt Date: 20140912
  Transmission Date: 20150326
  Serious: Yes (Death, Hospitalization)
  Sender: FDA-Public Use
  Company Number: US-JNJFOC-20140505336

PATIENT
  Age: 63 Year
  Sex: Male
  Weight: 59.7 kg

DRUGS (3)
  1. IDARUBICIN [Suspect]
     Active Substance: IDARUBICIN
     Indication: ACUTE MYELOID LEUKAEMIA
     Route: 042
     Dates: start: 20140303
  2. DACOGEN [Suspect]
     Active Substance: DECITABINE
     Indication: ACUTE MYELOID LEUKAEMIA
     Route: 042
     Dates: start: 20140226
  3. CYTARABINE. [Suspect]
     Active Substance: CYTARABINE
     Indication: ACUTE MYELOID LEUKAEMIA
     Route: 042
     Dates: start: 20140303, end: 20140408

REACTIONS (8)
  - Pneumonia fungal [None]
  - No therapeutic response [None]
  - Pulmonary haemorrhage [None]
  - Bradycardia [None]
  - Febrile neutropenia [None]
  - Hypotension [None]
  - Lung infection [None]
  - Hypoxia [None]

NARRATIVE: CASE EVENT DATE: 201403
